FAERS Safety Report 8541219-8 (Version None)
Quarter: 2012Q3

REPORT INFORMATION
  Report Type: 
  Country: None (occurrence: None)
  Receive Date: 20120726
  Receipt Date: 20120718
  Transmission Date: 20120928
  Serious: Yes (Other)
  Sender: FDA-Public Use
  Company Number: US-PFIZER INC-2012174015

PATIENT
  Sex: Male
  Weight: 48 kg

DRUGS (4)
  1. LIPITOR [Suspect]
     Indication: BLOOD CHOLESTEROL INCREASED
     Dosage: 20 MG, 1X/DAY
     Route: 048
  2. LIPITOR [Suspect]
     Dosage: 40 MG, 1X/DAY
     Route: 048
  3. CLARITIN [Concomitant]
     Indication: HYPERSENSITIVITY
     Dosage: UNK, AS NEEDED
  4. LIPITOR [Suspect]
     Dosage: 80 MG, 1X/DAY
     Route: 048
     Dates: end: 20120601

REACTIONS (5)
  - CHOLECYSTITIS INFECTIVE [None]
  - MYALGIA [None]
  - PAIN IN EXTREMITY [None]
  - MUSCULOSKELETAL DISORDER [None]
  - PANCREAS INFECTION [None]
